FAERS Safety Report 7656860-4 (Version None)
Quarter: 2011Q3

REPORT INFORMATION
  Report Type: 
  Country: None (occurrence: None)
  Receive Date: 20110802
  Receipt Date: 20110722
  Transmission Date: 20111222
  Serious: Yes (Other)
  Sender: FDA-Public Use
  Company Number: 1000022509

PATIENT

DRUGS (2)
  1. CITALOPRAM HYDROBROMIDE [Suspect]
  2. ACETYLSALICYLIC ACID SRT [Suspect]

REACTIONS (2)
  - CONTUSION [None]
  - WOUND HAEMORRHAGE [None]
